FAERS Safety Report 7367630-9 (Version None)
Quarter: 2011Q1

REPORT INFORMATION
  Report Type: 
  Country: None (occurrence: None)
  Receive Date: 20110322
  Receipt Date: 20110317
  Transmission Date: 20110831
  Serious: Yes (Hospitalization, Other)
  Sender: FDA-Public Use
  Company Number: BR-ABBOTT-11P-020-0712897-00

PATIENT
  Sex: Male
  Weight: 85 kg

DRUGS (5)
  1. HUMIRA [Suspect]
     Route: 058
  2. HUMIRA [Suspect]
     Indication: CROHN'S DISEASE
     Route: 058
     Dates: start: 20101210
  3. HUMIRA [Suspect]
     Route: 058
     Dates: end: 20110201
  4. AZATHIOPRINE [Concomitant]
     Indication: CROHN'S DISEASE
     Route: 048
  5. PREDNISONE [Concomitant]
     Indication: CROHN'S DISEASE

REACTIONS (7)
  - VOMITING [None]
  - POLYSEROSITIS [None]
  - ASCITES [None]
  - GASTRITIS [None]
  - ABDOMINAL PAIN [None]
  - NAUSEA [None]
  - PLEURAL EFFUSION [None]
